FAERS Safety Report 5999995-4 (Version None)
Quarter: 2008Q4

REPORT INFORMATION
  Report Type: 
  Country: None (occurrence: None)
  Receive Date: 20081215
  Receipt Date: 20081208
  Transmission Date: 20090506
  Serious: Yes (Life-Threatening)
  Sender: FDA-Public Use
  Company Number: CA-ABBOTT-08P-028-0491989-00

PATIENT
  Age: 22 Month
  Sex: Female
  Weight: 10.6 kg

DRUGS (10)
  1. SEVOFLURANE [Suspect]
     Indication: INDUCTION OF ANAESTHESIA
  2. ULTIVA [Suspect]
     Indication: DRUG USE FOR UNKNOWN INDICATION
     Route: 042
  3. CARVEDILOL [Suspect]
     Indication: DRUG USE FOR UNKNOWN INDICATION
  4. CAPTOPRIL [Suspect]
     Indication: DRUG USE FOR UNKNOWN INDICATION
  5. DIGOXIN [Concomitant]
     Indication: DRUG USE FOR UNKNOWN INDICATION
  6. FUROSEMIDE [Concomitant]
     Indication: DRUG USE FOR UNKNOWN INDICATION
  7. AMIODARONE HCL [Concomitant]
     Indication: DRUG USE FOR UNKNOWN INDICATION
  8. MIDAZOLAM HCL [Concomitant]
     Indication: DRUG USE FOR UNKNOWN INDICATION
  9. ACETAMINOPHEN [Concomitant]
     Indication: DRUG USE FOR UNKNOWN INDICATION
  10. MIVACURIUM [Concomitant]
     Indication: ENDOTRACHEAL INTUBATION

REACTIONS (1)
  - CIRCULATORY COLLAPSE [None]
